FAERS Safety Report 5934424-8 (Version None)
Quarter: 2008Q4

REPORT INFORMATION
  Report Type: 
  Country: None (occurrence: None)
  Receive Date: 20081010
  Receipt Date: 20070829
  Transmission Date: 20090506
  Serious: Yes (Hospitalization)
  Sender: FDA-Public Use
  Company Number: 2007SP017423

PATIENT
  Age: 60 Year
  Sex: Female
  Weight: 155 kg

DRUGS (7)
  1. TEMODAR [Suspect]
     Indication: GLIOBLASTOMA
     Dosage: 135 MG;QD;PO
     Route: 048
     Dates: start: 20070716, end: 20070827
  2. TEMODAR [Suspect]
  3. TEMODAR [Suspect]
  4. DILANTIN [Suspect]
     Indication: CONVULSION
     Dosage: PO
     Route: 048
     Dates: start: 20070601, end: 20070824
  5. NEXIUM [Concomitant]
  6. VALIUM [Concomitant]
  7. PRINIVIL [Concomitant]

REACTIONS (4)
  - NAUSEA [None]
  - PYREXIA [None]
  - TRANSAMINASES INCREASED [None]
  - VOMITING [None]
